FAERS Safety Report 6175734-1 (Version None)
Quarter: 2009Q2

REPORT INFORMATION
  Report Type: 
  Country: None (occurrence: None)
  Receive Date: 20090501
  Receipt Date: 20090413
  Transmission Date: 20091009
  Serious: Yes (Death, Hospitalization)
  Sender: FDA-Public Use
  Company Number: JP-PFIZER INC-2009196529

PATIENT

DRUGS (11)
  1. METHYLPREDNISOLONE AND METHYLPREDNISOLONE ACETATE AND METHYLPREDNISOLO [Suspect]
  2. PREDNISOLONE [Concomitant]
  3. CEFTAZIDIME [Concomitant]
  4. CLINDAMYCIN HYDROCHLORIDE [Concomitant]
  5. VORICONAZOLE [Concomitant]
  6. VANCOMYCIN HCL [Concomitant]
  7. GANCICLOVIR [Concomitant]
  8. CEFOZOPRAN HYDROCHLORIDE [Concomitant]
  9. FLOMOXEF SODIUM [Concomitant]
  10. PANIPENEM [Concomitant]
  11. BETAMIPRON [Concomitant]

REACTIONS (1)
  - SYSTEMIC CANDIDA [None]
